FAERS Safety Report 7965628-0 (Version None)
Quarter: 2011Q4

REPORT INFORMATION
  Report Type: 
  Country: None (occurrence: None)
  Receive Date: 20111208
  Receipt Date: 20111128
  Transmission Date: 20120403
  Serious: Yes (Other)
  Sender: FDA-Public Use
  Company Number: PHHY2011US099604

PATIENT
  Age: 33 Year
  Sex: Female

DRUGS (3)
  1. VENLAFAXINE [Interacting]
     Dosage: 150 MG, UNK
  2. CYCLOSPORINE [Interacting]
     Indication: IMMUNOSUPPRESSION
  3. VENLAFAXINE [Suspect]
     Indication: DEPRESSION
     Dosage: 37.5 MG, TID

REACTIONS (10)
  - HYPERHIDROSIS [None]
  - HYPERTENSION [None]
  - MYOCLONUS [None]
  - NYSTAGMUS [None]
  - CLONUS [None]
  - DRUG INTERACTION [None]
  - MUSCLE RIGIDITY [None]
  - DRUG LEVEL ABOVE THERAPEUTIC [None]
  - SEROTONIN SYNDROME [None]
  - RESTING TREMOR [None]
